FAERS Safety Report 8881440 (Version 1)
Quarter: 2012Q4

REPORT INFORMATION
  Report Type: 
  Country: ES (occurrence: MX)
  Receive Date: 20121102
  Receipt Date: 20121102
  Transmission Date: 20130627
  Serious: Yes (Death, Hospitalization, Other)
  Sender: FDA-Public Use
  Company Number: ES-RANBAXY-2012RR-55929

PATIENT
  Age: 65 Year
  Sex: Male

DRUGS (5)
  1. ENALAPRIL [Suspect]
     Indication: PRODUCT USED FOR UNKNOWN INDICATION
     Dosage: 40 mg/day
     Route: 065
  2. ATENOLOL [Suspect]
     Indication: PRODUCT USED FOR UNKNOWN INDICATION
     Dosage: 50 mg/day
     Route: 065
  3. FENOFIBRATE [Suspect]
     Indication: PRODUCT USED FOR UNKNOWN INDICATION
     Dosage: 200 mg/day
     Route: 065
  4. ACETYLSALICYLIC ACID [Suspect]
     Indication: PRODUCT USED FOR UNKNOWN INDICATION
     Dosage: 300 mg/day
     Route: 065
  5. ROSIGLITAZONE MALEATE AND METFORMIN HYDROCHLORIDE [Suspect]
     Indication: PRODUCT USED FOR UNKNOWN INDICATION
     Dosage: 2/500 mg, bid
     Route: 065

REACTIONS (3)
  - Lactic acidosis [Recovering/Resolving]
  - Cardiac arrest [Recovering/Resolving]
  - Drug interaction [Recovering/Resolving]
